FAERS Safety Report 14203284 (Version 2)
Quarter: 2017Q4

REPORT INFORMATION
  Report Type: Spontaneous
  Country: FR (occurrence: FR)
  Receive Date: 20171120
  Receipt Date: 20171129
  Transmission Date: 20180321
  Serious: Yes (Life-Threatening, Hospitalization, Other)
  Sender: FDA-Public Use
  Company Number: FR-ACCORD-061116

PATIENT
  Age: 56 Year
  Sex: Female

DRUGS (2)
  1. IRINOTECAN [Suspect]
     Active Substance: IRINOTECAN
     Indication: PANCREATIC CARCINOMA METASTATIC
     Dosage: 5-DAY TREATMENT
     Route: 042
  2. TEMOZOLOMIDE. [Suspect]
     Active Substance: TEMOZOLOMIDE
     Indication: PANCREATIC CARCINOMA METASTATIC
     Dosage: 5-DAY TREATMENT
     Route: 048

REACTIONS (12)
  - Off label use [Unknown]
  - Anaemia [Unknown]
  - Diverticulitis [Unknown]
  - Acute kidney injury [Recovered/Resolved]
  - Hepatocellular injury [Unknown]
  - Enteritis [Unknown]
  - Stomatitis [Unknown]
  - Neutropenia [Recovered/Resolved]
  - Vomiting [Recovered/Resolved]
  - Thrombocytopenia [Unknown]
  - Septic shock [Unknown]
  - Diarrhoea [Recovered/Resolved]
